FAERS Safety Report 5087709-4 (Version None)
Quarter: 2006Q3

REPORT INFORMATION
  Report Type: 
  Country: None (occurrence: None)
  Receive Date: 20060821
  Receipt Date: 20060807
  Transmission Date: 20061208
  Serious: Yes (Other)
  Sender: FDA-Public Use
  Company Number: 2006097530

PATIENT
  Age: 30 Year
  Sex: Male
  Weight: 139.7079 kg

DRUGS (4)
  1. LYRICA [Suspect]
     Indication: DRUG USE FOR UNKNOWN INDICATION
     Dosage: 50 MG (50 MG, 1 IN 1 D)
     Dates: start: 20060720
  2. LAMICTAL [Suspect]
     Indication: DRUG USE FOR UNKNOWN INDICATION
     Dosage: 450 MG (225 MG, 2 IN 1 D)
     Dates: end: 20060801
  3. TOPAMAX [Concomitant]
  4. GABATRIL (TIAGRINE HYDROCHLORIDE) [Concomitant]

REACTIONS (8)
  - CONVULSION [None]
  - DRUG INTERACTION [None]
  - HALLUCINATION [None]
  - INTENTIONAL SELF-INJURY [None]
  - LACERATION [None]
  - RASH [None]
  - SPEECH DISORDER [None]
  - WEIGHT DECREASED [None]
